FAERS Safety Report 6521782-9 (Version None)
Quarter: 2009Q4

REPORT INFORMATION
  Report Type: 
  Country: None (occurrence: None)
  Receive Date: 20091229
  Receipt Date: 20091229
  Transmission Date: 20100525
  Serious: No
  Sender: FDA-Public Use
  Company Number: None

PATIENT
  Sex: Female
  Weight: 69.8539 kg

DRUGS (2)
  1. VENLAFAXINE HCL [Suspect]
     Dosage: 75MG ONE QAM PO
     Route: 048
     Dates: start: 20091209, end: 20091214
  2. PROZAC [Suspect]
     Dosage: 20 ONE QAM PO
     Route: 048
     Dates: start: 20091214, end: 20091214

REACTIONS (3)
  - DRUG INEFFECTIVE [None]
  - NAUSEA [None]
  - VOMITING [None]
